FAERS Safety Report 15632149 (Version 1)
Quarter: 2018Q4

REPORT INFORMATION
  Report Type: Spontaneous
  Country: US (occurrence: US)
  Receive Date: 20181118
  Receipt Date: 20181118
  Transmission Date: 20190205
  Serious: No
  Sender: FDA-Public Use
  Company Number: None

PATIENT
  Age: 64 Year
  Sex: Female
  Weight: 63 kg

DRUGS (1)
  1. EUCRISA [Suspect]
     Active Substance: CRISABOROLE
     Indication: ECZEMA
     Dosage: ?          QUANTITY:1 20 GRAMS;?
     Route: 061
     Dates: start: 20181012, end: 20181102

REACTIONS (4)
  - Erythema [None]
  - Product complaint [None]
  - Product use complaint [None]
  - Skin burning sensation [None]
